FAERS Safety Report 12798045 (Version 1)
Quarter: 2016Q3

REPORT INFORMATION
  Report Type: Spontaneous
  Country: US (occurrence: US)
  Receive Date: 20160930
  Receipt Date: 20160930
  Transmission Date: 20161109
  Serious: Yes (Other)
  Sender: FDA-Public Use
  Company Number: None

PATIENT
  Age: 67 Year
  Sex: Female
  Weight: 81 kg

DRUGS (4)
  1. NEUTROGENA DEEP CLEAN FACIAL CLEANSER [Suspect]
     Active Substance: COSMETICS
     Indication: REMOVAL OF INERT MATTER FROM SKIN OR SUBCUTANEOUS TISSUE
     Route: 061
     Dates: start: 201606, end: 20160626
  2. NEUTROGENA RAPID WRINKLE REPAIR MOISTURIZER SUNSCREEN BROAD SPECTRUM SPF30 [Suspect]
     Active Substance: AVOBENZONE\HOMOSALATE\OCTISALATE\OCTOCRYLENE
     Indication: THERAPEUTIC SKIN CARE TOPICAL
     Dosage: NEUTROGENIA RAPID WRINKLE REPAIR MOISTURIZER SPF 30, PEARL SIZE AMOUNT, 1X/DAY, TOPICAL
     Route: 061
     Dates: start: 201606, end: 20160626
  3. UNSPECIFIED BLOOD PRESSURE MEDICINE [Concomitant]
     Active Substance: UNSPECIFIED INGREDIENT
  4. NEUTROGENA RAPID WRINKLE REPAIR NIGHT MOISTURIZER [Suspect]
     Active Substance: COSMETICS
     Indication: THERAPEUTIC SKIN CARE TOPICAL
     Route: 061
     Dates: start: 201606, end: 20160626

REACTIONS (3)
  - Drug ineffective [None]
  - Dermatitis contact [None]
  - Skin discolouration [None]

NARRATIVE: CASE EVENT DATE: 201606
